FAERS Safety Report 6773454-3 (Version None)
Quarter: 2010Q2

REPORT INFORMATION
  Report Type: 
  Country: None (occurrence: None)
  Receive Date: 20100616
  Receipt Date: 20100610
  Transmission Date: 20101027
  Serious: Yes (Hospitalization, Other)
  Sender: FDA-Public Use
  Company Number: US-AMGEN-US412172

PATIENT
  Sex: Male
  Weight: 79.47 kg

DRUGS (11)
  1. ARANESP [Suspect]
     Indication: RENAL FAILURE CHRONIC
     Dates: start: 20100127
  2. PROCRIT [Suspect]
     Indication: RENAL FAILURE CHRONIC
  3. COUMADIN [Concomitant]
  4. LASIX [Concomitant]
  5. ALDACTONE [Concomitant]
  6. LEVOTHYROXINE SODIUM [Concomitant]
  7. SOTALOL [Concomitant]
  8. PRAVACHOL [Concomitant]
  9. DELTASONE [Concomitant]
  10. PRILOSEC [Concomitant]
  11. FOLVITE [Concomitant]

REACTIONS (6)
  - APLASIA PURE RED CELL [None]
  - DYSPNOEA EXERTIONAL [None]
  - FATIGUE [None]
  - HOSPITALISATION [None]
  - LYMPHOCYTOSIS [None]
  - MYELODYSPLASTIC SYNDROME [None]
